FAERS Safety Report 7112638-1 (Version None)
Quarter: 2010Q4

REPORT INFORMATION
  Report Type: 
  Country: None (occurrence: None)
  Receive Date: 20101119
  Receipt Date: 20100521
  Transmission Date: 20110411
  Serious: No
  Sender: FDA-Public Use
  Company Number: US-TEVA-235949USA

PATIENT
  Sex: Female
  Weight: 57.204 kg

DRUGS (4)
  1. ALBUTEROL SULFATE AUTOHALER [Suspect]
     Indication: COUGH
     Route: 055
     Dates: start: 20100520
  2. SIMVASTATIN [Concomitant]
  3. ERYTHROMYCIN [Concomitant]
  4. BLOOD PRESSURE MEDICATION (NOS) [Concomitant]

REACTIONS (1)
  - ANGINA PECTORIS [None]
